FAERS Safety Report 9106087 (Version 6)
Quarter: 2017Q2

REPORT INFORMATION
  Report Type: Spontaneous
  Country: US (occurrence: US)
  Receive Date: 20130220
  Receipt Date: 20170615
  Transmission Date: 20170830
  Serious: Yes (Death, Hospitalization, Other)
  Sender: FDA-Public Use
  Company Number: US-PFIZER INC-2013062850

PATIENT
  Age: 66 Year
  Sex: Male
  Weight: 178 kg

DRUGS (40)
  1. OXYCODONE [Concomitant]
     Active Substance: OXYCODONE
     Dosage: UNK, 2X/DAY
     Dates: start: 2000
  2. ZINC. [Concomitant]
     Active Substance: ZINC
     Dosage: UNK
  3. GENTEAL MILD [Concomitant]
     Active Substance: HYPROMELLOSE 2910 (4000 MPA.S)
     Dosage: UNK
  4. NORVASC [Concomitant]
     Active Substance: AMLODIPINE BESYLATE
     Indication: BLOOD PRESSURE ABNORMAL
     Dosage: UNK, 2X/DAY
     Dates: end: 201705
  5. NUBAIN [Concomitant]
     Active Substance: NALBUPHINE HYDROCHLORIDE
     Dosage: UNK
  6. CHLORTAB [Concomitant]
     Active Substance: CHLORPHENIRAMINE MALEATE
     Indication: HYPERSENSITIVITY
     Dosage: 4 MG, 2X/DAY
     Dates: end: 201705
  7. LYRICA [Suspect]
     Active Substance: PREGABALIN
     Dosage: 75 MG, 2X/DAY
     Route: 048
     Dates: end: 201705
  8. ULTRAM [Concomitant]
     Active Substance: TRAMADOL HYDROCHLORIDE
     Dosage: 50 MG, AS NEEDED
     Dates: start: 2012
  9. DIOVAN [Concomitant]
     Active Substance: VALSARTAN
     Dosage: 160 MG, 1X/DAY
     Dates: end: 2011
  10. LASIX [Concomitant]
     Active Substance: FUROSEMIDE
     Dosage: 40 MG, 1X/DAY
     Dates: start: 1978
  11. METHADONE [Concomitant]
     Active Substance: METHADONE HYDROCHLORIDE
     Indication: PAIN
     Dosage: 10 MG, UNK
     Dates: start: 2000
  12. LIPITOR [Concomitant]
     Active Substance: ATORVASTATIN CALCIUM
     Dosage: 40 MG, 1X/DAY
     Dates: start: 2011, end: 201705
  13. BUSPIRONE [Concomitant]
     Active Substance: BUSPIRONE HYDROCHLORIDE
     Indication: DEPRESSION
     Dosage: 15 MG, 2X/DAY
     Dates: end: 201705
  14. LYRICA [Suspect]
     Active Substance: PREGABALIN
     Indication: NEUROPATHY PERIPHERAL
     Dosage: 75 MG, 2X/DAY
     Route: 048
     Dates: start: 2000
  15. ZANAFLEX [Concomitant]
     Active Substance: TIZANIDINE HYDROCHLORIDE
     Dosage: 4 MG, 1X/DAY
     Dates: end: 201705
  16. NIZRAL [Concomitant]
     Dosage: UNK
  17. PREDNISONE. [Concomitant]
     Active Substance: PREDNISONE
     Dosage: UNK
  18. ASPIRIN. [Concomitant]
     Active Substance: ASPIRIN
     Dosage: 325 MG, 2X/DAY
     Dates: start: 1976
  19. COLCRYS [Concomitant]
     Active Substance: COLCHICINE
     Indication: GOUT
     Dosage: 0.6 MG, 2X/DAY
     Route: 048
     Dates: start: 1970, end: 201705
  20. LOPRESSOR [Concomitant]
     Active Substance: METOPROLOL TARTRATE
     Indication: CARDIAC DISORDER
     Dosage: 25 MG, 2X/DAY
     Dates: start: 2009, end: 201705
  21. DEXILANT [Concomitant]
     Active Substance: DEXLANSOPRAZOLE
     Indication: DYSPEPSIA
     Dosage: 60 MG, 1X/DAY
     Dates: start: 2000, end: 201705
  22. ASA [Concomitant]
     Active Substance: ASPIRIN
  23. ANTARA [Concomitant]
     Active Substance: FENOFIBRATE
     Dosage: 130 MG, 1X/DAY
     Dates: start: 2012
  24. NEURONTIN [Concomitant]
     Active Substance: GABAPENTIN
     Dosage: UNK
  25. CELEXA [Concomitant]
     Active Substance: CITALOPRAM HYDROBROMIDE
     Dosage: UNK
  26. CHLORPHENIRAMINE. [Concomitant]
     Active Substance: CHLORPHENIRAMINE
     Dosage: UNK
  27. COLACE [Concomitant]
     Active Substance: DOCUSATE SODIUM
  28. METHADONE HCL [Concomitant]
     Active Substance: METHADONE HYDROCHLORIDE
     Indication: PAIN IN EXTREMITY
     Dosage: 10 MG, 2X/DAY
     Dates: end: 201705
  29. BUSPAR [Concomitant]
     Active Substance: BUSPIRONE HYDROCHLORIDE
     Dosage: 15 MG, 2X/DAY
     Dates: start: 2000
  30. HUMULIN R U-500 [Concomitant]
     Active Substance: INSULIN HUMAN
     Dosage: UNK
     Dates: start: 2010
  31. VITAMIN D [Concomitant]
     Active Substance: CHOLECALCIFEROL
     Dosage: 1000 IU, 1X/DAY
  32. SILVADENE [Concomitant]
     Active Substance: SILVER SULFADIAZINE
     Dosage: UNK
  33. NITROGLYCERIN. [Concomitant]
     Active Substance: NITROGLYCERIN
     Dosage: 0.4 MG, AS NEEDED
     Dates: start: 1991
  34. ZANAFLEX [Concomitant]
     Active Substance: TIZANIDINE HYDROCHLORIDE
     Indication: PAIN IN EXTREMITY
     Dosage: 4 MG, 2X/DAY
     Dates: start: 2000
  35. TRAMADOL. [Concomitant]
     Active Substance: TRAMADOL
     Dosage: UNK
  36. PERCOCET [Concomitant]
     Active Substance: ACETAMINOPHEN\OXYCODONE HYDROCHLORIDE
     Dosage: UNK
  37. SENOKOT [Concomitant]
     Active Substance: SENNOSIDES
     Dosage: UNK
  38. METOPROLOL. [Concomitant]
     Active Substance: METOPROLOL
     Dosage: UNK
  39. BABY ASPIRIN [Concomitant]
     Active Substance: ASPIRIN
     Indication: CARDIAC DISORDER
     Dosage: 81 MG, 1X/DAY
     Dates: start: 2016, end: 201705
  40. FENOFIBRATE. [Concomitant]
     Active Substance: FENOFIBRATE
     Dosage: 160 MG, DAILY (TOOK ONE A DAY)
     Dates: end: 201705

REACTIONS (12)
  - Myocardial infarction [Fatal]
  - Renal disorder [Unknown]
  - Delirium [Fatal]
  - Weight decreased [Unknown]
  - Sepsis [Fatal]
  - Escherichia infection [Fatal]
  - Renal failure [Fatal]
  - Pain [Unknown]
  - Body height decreased [Unknown]
  - Hepatic cirrhosis [Fatal]
  - Feeling abnormal [Fatal]
  - Pain in extremity [Unknown]

NARRATIVE: CASE EVENT DATE: 201302
